FAERS Safety Report 13332982 (Version 3)
Quarter: 2017Q2

REPORT INFORMATION
  Report Type: Spontaneous
  Country: EG (occurrence: EG)
  Receive Date: 20170313
  Receipt Date: 20170403
  Transmission Date: 20170830
  Serious: Yes (Death)
  Sender: FDA-Public Use
  Company Number: EG-PFIZER INC-2017103041

PATIENT
  Age: 16 Year
  Sex: Male
  Weight: 62 kg

DRUGS (3)
  1. ASPARAGINASE [Suspect]
     Active Substance: ASPARAGINASE
     Indication: ACUTE LYMPHOCYTIC LEUKAEMIA
     Dosage: 10000 U/M2, 1 PER 2 DAYS
     Route: 042
     Dates: start: 20160522, end: 20160524
  2. SOLU-MEDROL [Suspect]
     Active Substance: METHYLPREDNISOLONE SODIUM SUCCINATE
     Indication: ACUTE LYMPHOCYTIC LEUKAEMIA
     Dosage: 32 MG/M2, 1X/DAY
     Route: 042
     Dates: start: 20160519
  3. ASPARAGINASE [Suspect]
     Active Substance: ASPARAGINASE
     Dosage: 10000 U/M2, 1 PER 2 DAYS
     Route: 042
     Dates: start: 20160529, end: 20160602

REACTIONS (6)
  - Hypoalbuminaemia [Fatal]
  - Hyperglycaemia [Fatal]
  - Headache [Fatal]
  - Weight decreased [Fatal]
  - Pneumonia fungal [Fatal]
  - Hepatic enzyme increased [Fatal]

NARRATIVE: CASE EVENT DATE: 20160528
